FAERS Safety Report 6392004-7 (Version None)
Quarter: 2009Q4

REPORT INFORMATION
  Report Type: 
  Country: None (occurrence: None)
  Receive Date: 20091007
  Receipt Date: 20091005
  Transmission Date: 20100525
  Serious: Yes (Hospitalization)
  Sender: FDA-Public Use
  Company Number: Z0001842A

PATIENT
  Age: 62 Year
  Sex: Female
  Weight: 109.1 kg

DRUGS (2)
  1. TOPOTECAN [Suspect]
     Dosage: 2.3MGM2 CYCLIC
     Route: 048
     Dates: start: 20090204
  2. BEVACIZUMAB [Suspect]
     Dosage: 15MGK CYCLIC
     Route: 042
     Dates: start: 20090204

REACTIONS (1)
  - DIABETIC KETOACIDOSIS [None]
